APPROVED DRUG PRODUCT: NILOTINIB D-TARTRATE
Active Ingredient: NILOTINIB D-TARTRATE
Strength: EQ 200MG BASE
Dosage Form/Route: CAPSULE;ORAL
Application: N218922 | Product #003
Applicant: CIPLA LTD
Approved: Feb 19, 2025 | RLD: Yes | RS: Yes | Type: RX